FAERS Safety Report 11010143 (Version 1)
Quarter: 2015Q2

REPORT INFORMATION
  Report Type: Spontaneous
  Country: BR (occurrence: BR)
  Receive Date: 20150410
  Receipt Date: 20150410
  Transmission Date: 20150821
  Serious: Yes (Other)
  Sender: FDA-Public Use
  Company Number: BR-GALDERMA-BR15001793

PATIENT
  Age: 25 Year
  Sex: Male

DRUGS (1)
  1. PLIAGLIS [Suspect]
     Active Substance: LIDOCAINE\TETRACAINE
     Indication: LOCAL ANAESTHESIA
     Dosage: 7%-7%
     Route: 061
     Dates: start: 20150326, end: 20150326

REACTIONS (4)
  - Skin oedema [Unknown]
  - Epidermal necrosis [Unknown]
  - Wound secretion [Unknown]
  - Erythema [Unknown]

NARRATIVE: CASE EVENT DATE: 20150326
